FAERS Safety Report 10205190 (Version 3)
Quarter: 2014Q2

REPORT INFORMATION
  Report Type: Report from Study
  Country: CA (occurrence: CA)
  Receive Date: 20140529
  Receipt Date: 20140605
  Transmission Date: 20141212
  Serious: Yes (Other)
  Sender: FDA-Public Use
  Company Number: CA-JNJFOC-20140404791

PATIENT
  Age: 49 Year
  Sex: Female
  Weight: 41 kg

DRUGS (3)
  1. SIMPONI [Suspect]
     Indication: CROHN^S DISEASE
     Dosage: WEEK 0
     Route: 058
     Dates: start: 20131216
  2. SIMPONI [Suspect]
     Indication: CROHN^S DISEASE
     Dosage: WEEK 2
     Route: 058
  3. SIMPONI [Suspect]
     Indication: CROHN^S DISEASE
     Route: 058
     Dates: start: 20131216, end: 201404

REACTIONS (4)
  - Enterovesical fistula [Unknown]
  - Urinary tract infection bacterial [Not Recovered/Not Resolved]
  - Tonsillitis [Unknown]
  - Off label use [Unknown]
